FAERS Safety Report 4396811-1 (Version None)
Quarter: 2004Q3

REPORT INFORMATION
  Report Type: 
  Country: None (occurrence: None)
  Receive Date: 20040709
  Receipt Date: 20040628
  Transmission Date: 20050211
  Serious: Yes (Other)
  Sender: FDA-Public Use
  Company Number: 2004214735AU

PATIENT
  Age: 68 Year
  Sex: Female
  Weight: 60 kg

DRUGS (7)
  1. CELEBREX [Suspect]
     Indication: OSTEOARTHRITIS
     Dosage: 100 MG, QD, ORAL
     Dates: start: 20020101
  2. CELEBREX [Suspect]
     Indication: OSTEOARTHRITIS
     Dosage: 100 MG, QD, ORAL
     Dates: start: 20020201
  3. WARFARIN SODIUM [Concomitant]
  4. TEGRETOL [Concomitant]
  5. PREMARIN [Concomitant]
  6. SOMAC (PANTOPRAZOLE SODIUM) [Concomitant]
  7. KARVEA (IRBESARTAN) [Concomitant]

REACTIONS (5)
  - ANAPHYLACTIC SHOCK [None]
  - DRUG HYPERSENSITIVITY [None]
  - DYSGEUSIA [None]
  - DYSSTASIA [None]
  - PULSE PRESSURE DECREASED [None]
